FAERS Safety Report 7704300-9 (Version None)
Quarter: 2011Q3

REPORT INFORMATION
  Report Type: 
  Country: None (occurrence: None)
  Receive Date: 20110823
  Receipt Date: 20110812
  Transmission Date: 20111222
  Serious: Yes (Other)
  Sender: FDA-Public Use
  Company Number: PHHY2011AU72857

PATIENT
  Sex: Female

DRUGS (2)
  1. TEGRETOL-XR [Suspect]
     Indication: CONVULSION
     Dosage: 200 MG, 1 IN MORNING AND 2 IN NIGHT
     Dates: start: 20091001
  2. VITAMIN D [Concomitant]
     Dosage: UNK UKN, UNK

REACTIONS (4)
  - NIPPLE DISORDER [None]
  - MUSCLE ATROPHY [None]
  - DYSGEUSIA [None]
  - MYALGIA [None]
